FAERS Safety Report 16491966 (Version 1)
Quarter: 2019Q2

REPORT INFORMATION
  Report Type: Spontaneous
  Country: US (occurrence: US)
  Receive Date: 20190628
  Receipt Date: 20190628
  Transmission Date: 20190711
  Serious: Yes (Hospitalization)
  Sender: FDA-Public Use
  Company Number: US-FRESENIUS MEDICAL CARE RENAL THERAPIES GROUP-FMC-1906-000768

PATIENT
  Sex: Male
  Weight: 101 kg

DRUGS (1)
  1. DELFLEX [Suspect]
     Active Substance: CALCIUM CHLORIDE\DEXTROSE\MAGNESIUM CHLORIDE\SODIUM CHLORIDE\SODIUM LACTATE
     Indication: END STAGE RENAL DISEASE
     Dosage: 5 DAILY EXCHANGES OF 2500 ML, WITH AT DWELL TIME OF 1HOUR, 15 MINUTES, LAST FILL OF 2000 ML
     Route: 033
     Dates: start: 20161114

REACTIONS (1)
  - Peritonitis [Recovering/Resolving]
